FAERS Safety Report 6051625-1 (Version None)
Quarter: 2009Q1

REPORT INFORMATION
  Report Type: 
  Country: None (occurrence: None)
  Receive Date: 20090126
  Receipt Date: 20090119
  Transmission Date: 20090719
  Serious: Yes (Hospitalization)
  Sender: FDA-Public Use
  Company Number: CG-MERCK-0901USA03038

PATIENT
  Age: 34 Year
  Sex: Male

DRUGS (1)
  1. STROMECTOL [Suspect]
     Indication: ONCHOCERCIASIS
     Route: 048
     Dates: start: 20081102, end: 20081102

REACTIONS (6)
  - ASTHENIA [None]
  - COMA [None]
  - MUSCULAR WEAKNESS [None]
  - MYALGIA [None]
  - URINARY INCONTINENCE [None]
  - VERTIGO [None]
